FAERS Safety Report 4302215-X (Version None)
Quarter: 2004Q1

REPORT INFORMATION
  Report Type: 
  Country: None (occurrence: None)
  Receive Date: 20040220
  Receipt Date: 20040204
  Transmission Date: 20041129
  Serious: Yes (Other)
  Sender: FDA-Public Use
  Company Number: DSA_23928_2004

PATIENT
  Age: 70 Year
  Sex: Male

DRUGS (10)
  1. ENALAPRIL MALEATE [Suspect]
     Dates: start: 19970401, end: 20000101
  2. TOPICAL MEDICATIONS (FOR PSORIASIS) [Concomitant]
  3. DIGOXIN [Concomitant]
  4. ACENOCOUMAROL [Concomitant]
  5. THEOPHYLLINE [Concomitant]
  6. AMILORIDE [Concomitant]
  7. FUROSEMIDE [Concomitant]
  8. ISOSORBIDE MONONITRATE [Concomitant]
  9. PRAVASTATIN SODIUM [Concomitant]
  10. LACIDIPINE [Concomitant]

REACTIONS (6)
  - ACANTHOLYSIS [None]
  - AUTOIMMUNE DISORDER [None]
  - DERMATITIS PSORIASIFORM [None]
  - NIKOLSKY'S SIGN [None]
  - ONYCHOLYSIS [None]
  - PEMPHIGUS [None]
